FAERS Safety Report 25802344 (Version 1)
Quarter: 2025Q3

REPORT INFORMATION
  Report Type: Other
  Country: GB (occurrence: GB)
  Receive Date: 20250915
  Receipt Date: 20250915
  Transmission Date: 20251020
  Serious: Yes (Other)
  Sender: GLENMARK
  Company Number: GB-GLENMARK PHARMACEUTICALS-2025GMK103728

PATIENT
  Age: 22 Year
  Sex: Male
  Weight: 70 kg

DRUGS (1)
  1. MONTELUKAST SODIUM [Suspect]
     Active Substance: MONTELUKAST SODIUM
     Indication: Asthma
     Dosage: UNK, QD  (ONE EVERY NIGHT (ASTHMA PREVENTER)
     Route: 065
     Dates: start: 20250328

REACTIONS (1)
  - Yellow skin [Recovered/Resolved]
